FAERS Safety Report 5844450-5 (Version None)
Quarter: 2008Q3

REPORT INFORMATION
  Report Type: 
  Country: None (occurrence: None)
  Receive Date: 20080812
  Receipt Date: 20080804
  Transmission Date: 20090109
  Serious: Yes (Other)
  Sender: FDA-Public Use
  Company Number: CHPA2008US13121

PATIENT
  Age: 52 Year
  Sex: Female

DRUGS (1)
  1. BENEFIBER FIBER SUPPLEMENT SUGAR FREE (NCH)(GUAR GUM) POWDER [Suspect]
     Indication: NUTRITIONAL SUPPORT
     Dosage: 15 TSP, QD, ORAL
     Route: 048
     Dates: start: 20060601, end: 20070101

REACTIONS (2)
  - ILEOSTOMY [None]
  - VOLVULUS [None]
